FAERS Safety Report 22828489 (Version 2)
Quarter: 2023Q4

REPORT INFORMATION
  Report Type: Spontaneous
  Country: CA (occurrence: CA)
  Receive Date: 20230816
  Receipt Date: 20231031
  Transmission Date: 20240110
  Serious: Yes (Life-Threatening, Hospitalization, Other)
  Sender: FDA-Public Use
  Company Number: CA-JNJFOC-20230819708

PATIENT
  Age: 71 Year
  Sex: Female
  Weight: 154 kg

DRUGS (16)
  1. ACETAMINOPHEN [Suspect]
     Active Substance: ACETAMINOPHEN
     Indication: Pain
     Dosage: STARTED PRIOR TO ADMISSION, OTC MEDICATION SPECIFICS NOT KNOWN, STOPPED JANUARY 18, 2023
     Route: 048
     Dates: end: 20230118
  2. NITROFURANTOIN [Suspect]
     Active Substance: NITROFURANTOIN
     Indication: Urinary tract infection
     Dosage: ALSO HAD A 5 DAY COURSE OF NITROFURANTOIN JAN 3-8/2023
     Route: 048
     Dates: start: 20230114, end: 20230118
  3. CIPROFLOXACIN [Concomitant]
     Active Substance: CIPROFLOXACIN
     Indication: Product used for unknown indication
     Route: 048
     Dates: start: 20230111, end: 20230114
  4. CLOTRIMAZOLE [Concomitant]
     Active Substance: CLOTRIMAZOLE
     Indication: Product used for unknown indication
     Dosage: CLOTRIMAZOLE 1% TOPICALLY BID,
     Route: 061
  5. DIPHENHYDRAMINE [Concomitant]
     Active Substance: DIPHENHYDRAMINE
     Indication: Product used for unknown indication
     Dosage: 25-50MG PO Q6H PRN
     Route: 048
  6. EMPAGLIFLOZIN [Concomitant]
     Active Substance: EMPAGLIFLOZIN
     Indication: Product used for unknown indication
     Dosage: EMPAGLIFLOZIN 10MG PO ONCE DAILY (STARTED JANUARY 12),
     Route: 048
     Dates: start: 20230112
  7. FOLIC ACID [Concomitant]
     Active Substance: FOLIC ACID
     Indication: Product used for unknown indication
     Dosage: 1MG PO DAILY
     Route: 048
  8. GLICLAZIDE [Concomitant]
     Active Substance: GLICLAZIDE
     Indication: Product used for unknown indication
     Route: 048
  9. METOPROLOL [Concomitant]
     Active Substance: METOPROLOL
     Indication: Product used for unknown indication
     Dosage: METOPROLOL 50MG PO BID,
     Route: 048
  10. ONDANSETRON [Concomitant]
     Active Substance: ONDANSETRON
     Indication: Product used for unknown indication
     Dosage: ONDANSETRON 8MG PO Q8H PRN,
     Route: 048
  11. POLYETHYLENE GLYCOLS [Concomitant]
     Active Substance: POLYETHYLENE GLYCOLS
     Indication: Product used for unknown indication
     Route: 065
  12. SENNOSIDES [Concomitant]
     Active Substance: SENNOSIDES
     Indication: Product used for unknown indication
     Dosage: 8.6-17.2MG HS PRN,
     Route: 065
  13. SODIUM CHLORIDE [Concomitant]
     Active Substance: SODIUM CHLORIDE
     Indication: Product used for unknown indication
     Dosage: SODIUM CHLORIDE 1G PO BID
     Route: 048
  14. UREA [Concomitant]
     Active Substance: UREA
     Indication: Product used for unknown indication
     Dosage: UREA 10% TOPICALLY TID PM
     Route: 061
  15. APIXABAN [Concomitant]
     Active Substance: APIXABAN
     Indication: Product used for unknown indication
     Route: 048
  16. PEG 3350 [Concomitant]
     Active Substance: POLYETHYLENE GLYCOL 3350
     Indication: Product used for unknown indication
     Dosage: 17G ONCE DAILY WHEN NEEDED
     Route: 065

REACTIONS (9)
  - Drug-induced liver injury [Recovering/Resolving]
  - International normalised ratio increased [Recovering/Resolving]
  - Drug level increased [Recovering/Resolving]
  - Alanine aminotransferase increased [Recovering/Resolving]
  - Aspartate aminotransferase increased [Recovering/Resolving]
  - Blood alkaline phosphatase increased [Recovering/Resolving]
  - Blood lactate dehydrogenase increased [Recovering/Resolving]
  - Blood bilirubin increased [Recovering/Resolving]
  - Encephalopathy [Recovering/Resolving]

NARRATIVE: CASE EVENT DATE: 20230118
